FAERS Safety Report 7418020-1 (Version None)
Quarter: 2011Q2

REPORT INFORMATION
  Report Type: 
  Country: None (occurrence: None)
  Receive Date: 20110415
  Receipt Date: 20110412
  Transmission Date: 20111010
  Serious: Yes (Death)
  Sender: FDA-Public Use
  Company Number: FR-ROCHE-769306

PATIENT
  Sex: Female

DRUGS (7)
  1. RIVOTRIL [Suspect]
     Dosage: DOSING FREQ: DAILY
     Route: 048
     Dates: start: 20090903, end: 20110219
  2. ACETAMINOPHEN [Concomitant]
     Dosage: DOSING FREQ: DAILY
     Route: 048
     Dates: start: 20030731, end: 20110201
  3. BROMAZEPAM [Suspect]
     Indication: ANXIETY
     Dosage: DOSING FREQ: DAILY
     Route: 048
     Dates: start: 20090205, end: 20110219
  4. CACIT [Concomitant]
     Dosage: DOSING FREQ: DAILY
     Route: 048
     Dates: start: 20090208, end: 20110219
  5. PARKINANE [Concomitant]
     Route: 048
     Dates: start: 20070101, end: 20110219
  6. OMEPRAZOLE [Concomitant]
     Dosage: DOSING FREQ: DAILY
     Route: 048
     Dates: start: 20070101, end: 20110219
  7. SOLIAN [Concomitant]
     Dosage: DOSING FREQ: DAILY
     Route: 048
     Dates: start: 19970101, end: 20110219

REACTIONS (1)
  - DYSPHAGIA [None]
